FAERS Safety Report 6648958-4 (Version None)
Quarter: 2010Q1

REPORT INFORMATION
  Report Type: 
  Country: None (occurrence: None)
  Receive Date: 20100324
  Receipt Date: 20100319
  Transmission Date: 20100710
  Serious: Yes (Life-Threatening, Hospitalization, Disabling)
  Sender: FDA-Public Use
  Company Number: HR-MERCK-1003USA02997

PATIENT
  Age: 76 Year
  Sex: Female
  Weight: 36 kg

DRUGS (8)
  1. INVANZ [Suspect]
     Indication: PNEUMONIA
     Route: 042
     Dates: start: 20100227, end: 20100306
  2. TEOLIN [Suspect]
     Indication: ASTHMA
     Route: 048
     Dates: start: 20100303, end: 20100307
  3. ANEPHYLLIN (AMINOPHYLLINE) [Suspect]
     Indication: ASTHMA
     Route: 042
     Dates: start: 20100301, end: 20100305
  4. DIPYRONE [Concomitant]
     Route: 065
  5. NEXIUM [Concomitant]
     Route: 048
  6. PRINZIDE [Concomitant]
     Route: 048
  7. CIPRINOL [Concomitant]
     Route: 042
  8. ASPIRIN [Concomitant]
     Route: 065

REACTIONS (1)
  - EPILEPSY [None]
